FAERS Safety Report 8076778-5 (Version None)
Quarter: 2012Q1

REPORT INFORMATION
  Report Type: 
  Country: None (occurrence: None)
  Receive Date: 20120127
  Receipt Date: 20120119
  Transmission Date: 20120608
  Serious: Yes (Other)
  Sender: FDA-Public Use
  Company Number: GB-JNJFOC-20111006642

PATIENT
  Age: 42 Year
  Sex: Male

DRUGS (4)
  1. XEPLION [Suspect]
     Route: 030
  2. XEPLION [Suspect]
     Indication: SCHIZOPHRENIA, PARANOID TYPE
     Route: 030
     Dates: start: 20110823
  3. RISPERDAL [Concomitant]
     Route: 048
  4. RISPERDAL [Concomitant]
     Indication: SCHIZOPHRENIA, PARANOID TYPE
     Route: 048

REACTIONS (2)
  - DELUSION [None]
  - AGGRESSION [None]
